FAERS Safety Report 21123580 (Version 2)
Quarter: 2022Q3

REPORT INFORMATION
  Report Type: Spontaneous
  Country: GR (occurrence: GR)
  Receive Date: 20220725
  Receipt Date: 20220810
  Transmission Date: 20221027
  Serious: Yes (Other)
  Sender: FDA-Public Use
  Company Number: GR-JNJFOC-20220642500

PATIENT
  Age: 78 Year
  Sex: Female

DRUGS (6)
  1. SIMPONI [Suspect]
     Active Substance: GOLIMUMAB
     Indication: Ankylosing spondylitis
     Route: 058
  2. PERINDOPRIL [Concomitant]
     Active Substance: PERINDOPRIL
     Route: 065
  3. NEXIUM [Concomitant]
     Active Substance: ESOMEPRAZOLE MAGNESIUM
     Route: 065
  4. ONEALFA [Concomitant]
     Active Substance: ALFACALCIDOL
  5. XARELTO [Concomitant]
     Active Substance: RIVAROXABAN
     Route: 065
  6. RIVAROXABAN [Concomitant]
     Active Substance: RIVAROXABAN

REACTIONS (4)
  - Embolism [Unknown]
  - Product dose omission issue [Unknown]
  - Device malfunction [Unknown]
  - Arthralgia [Unknown]
